FAERS Safety Report 9097888 (Version 2)
Quarter: 2013Q1

REPORT INFORMATION
  Report Type: Spontaneous
  Country: GB (occurrence: GB)
  Receive Date: 20130212
  Receipt Date: 20130220
  Transmission Date: 20140127
  Serious: Yes (Hospitalization)
  Sender: FDA-Public Use
  Company Number: GB-BRISTOL-MYERS SQUIBB COMPANY-17364076

PATIENT
  Age: 67 Year
  Sex: Female

DRUGS (6)
  1. METFORMIN HCL [Suspect]
  2. LEVEMIR [Suspect]
     Indication: TYPE 1 DIABETES MELLITUS
     Dates: start: 200510
  3. NOVORAPID [Suspect]
     Indication: TYPE 1 DIABETES MELLITUS
     Dates: start: 200503
  4. INDAPAMIDE [Concomitant]
     Indication: BREAST CANCER
  5. LETROZOLE [Concomitant]
     Indication: BREAST CANCER
  6. SIMVASTATIN [Concomitant]
     Indication: BREAST CANCER

REACTIONS (4)
  - Hypoglycaemia [Recovered/Resolved]
  - Ketoacidosis [Recovered/Resolved]
  - Loss of consciousness [Recovered/Resolved]
  - Device difficult to use [Unknown]
